FAERS Safety Report 21931257 (Version 3)
Quarter: 2023Q2

REPORT INFORMATION
  Report Type: Spontaneous
  Country: JP (occurrence: JP)
  Receive Date: 20230131
  Receipt Date: 20230405
  Transmission Date: 20230722
  Serious: Yes (Other)
  Sender: FDA-Public Use
  Company Number: JP-MYLANLABS-2023M1008384

PATIENT
  Age: 11 Year
  Sex: Male

DRUGS (4)
  1. EPIPEN [Suspect]
     Active Substance: EPINEPHRINE
     Indication: Food allergy
     Dosage: UNK
     Route: 030
     Dates: start: 20230123
  2. EPIPEN [Suspect]
     Active Substance: EPINEPHRINE
     Indication: Lip swelling
  3. EPIPEN [Suspect]
     Active Substance: EPINEPHRINE
     Indication: Decreased activity
  4. EPIPEN [Suspect]
     Active Substance: EPINEPHRINE
     Indication: Somnolence

REACTIONS (6)
  - Injection site laceration [Not Recovered/Not Resolved]
  - Product quality issue [Unknown]
  - Needle issue [Unknown]
  - Expired product administered [Unknown]
  - Device use issue [Unknown]
  - Injection site scar [Not Recovered/Not Resolved]

NARRATIVE: CASE EVENT DATE: 20230101
